FAERS Safety Report 8459856-8 (Version None)
Quarter: 2012Q2

REPORT INFORMATION
  Report Type: 
  Country: None (occurrence: None)
  Receive Date: 20120622
  Receipt Date: 20120618
  Transmission Date: 20120825
  Serious: Yes (Hospitalization)
  Sender: FDA-Public Use
  Company Number: PHEH2012US007265

PATIENT
  Sex: Female

DRUGS (3)
  1. EXTAVIA [Suspect]
     Dosage: 0.25 MG, QOD
     Route: 058
     Dates: start: 20120227
  2. EXTAVIA [Suspect]
     Indication: MULTIPLE SCLEROSIS
     Dosage: 0.3 ML, QOD, (EVERY OTHER DAY)
     Route: 058
  3. EXTAVIA [Suspect]
     Dosage: 1 MG, UNK
     Route: 058

REACTIONS (7)
  - PYREXIA [None]
  - ABDOMINAL PAIN UPPER [None]
  - INJECTION SITE ERYTHEMA [None]
  - BALANCE DISORDER [None]
  - ABDOMINAL PAIN LOWER [None]
  - GASTROINTESTINAL BACTERIAL INFECTION [None]
  - GASTROINTESTINAL INFLAMMATION [None]
